FAERS Safety Report 7817185-7 (Version None)
Quarter: 2011Q4

REPORT INFORMATION
  Report Type: 
  Country: None (occurrence: None)
  Receive Date: 20111017
  Receipt Date: 20111017
  Transmission Date: 20120403
  Serious: Yes (Other)
  Sender: FDA-Public Use
  Company Number: None

PATIENT
  Age: 61 Year
  Sex: Female
  Weight: 67.131 kg

DRUGS (1)
  1. CEFDINIR [Suspect]
     Indication: SINUSITIS
     Dosage: 300MG
     Dates: start: 20111006, end: 20111015

REACTIONS (7)
  - HYPOAESTHESIA [None]
  - DIARRHOEA [None]
  - DEFAECATION URGENCY [None]
  - PRODUCT LABEL ISSUE [None]
  - MIDDLE INSOMNIA [None]
  - FAECAL INCONTINENCE [None]
  - PARAESTHESIA [None]
